FAERS Safety Report 22319822 (Version 1)
Quarter: 2023Q2

REPORT INFORMATION
  Report Type: Spontaneous
  Country: US (occurrence: US)
  Receive Date: 20230515
  Receipt Date: 20230515
  Transmission Date: 20230721
  Serious: No
  Sender: FDA-Public Use
  Company Number: US-Calliditas-2023CAL00454

PATIENT
  Age: 31 Year
  Sex: Male
  Weight: 62.14 kg

DRUGS (1)
  1. TARPEYO [Suspect]
     Active Substance: BUDESONIDE
     Indication: IgA nephropathy
     Dosage: 16MG (4MG CAPSULES) DAILY
     Route: 048
     Dates: start: 20230425

REACTIONS (2)
  - Headache [Unknown]
  - Hypertension [Unknown]
